FAERS Safety Report 5413204-6 (Version None)
Quarter: 2007Q3

REPORT INFORMATION
  Report Type: 
  Country: None (occurrence: None)
  Receive Date: 20070814
  Receipt Date: 20070807
  Transmission Date: 20080115
  Serious: Yes (Hospitalization, Other)
  Sender: FDA-Public Use
  Company Number: PHBS2007BR13199

PATIENT
  Age: 62 Year
  Sex: Male

DRUGS (5)
  1. BAMIFIX [Concomitant]
     Dosage: 300 MG, BID
  2. BEROTEC [Concomitant]
  3. ATROVENT [Concomitant]
  4. SODIUM CHLORIDE 0.9% [Concomitant]
  5. FORASEQ [Suspect]
     Indication: CHRONIC OBSTRUCTIVE PULMONARY DISEASE
     Dosage: 12/400 UG, BID

REACTIONS (4)
  - CHEST PAIN [None]
  - DEVICE MALFUNCTION [None]
  - PNEUMONIA [None]
  - PYREXIA [None]
